FAERS Safety Report 15613790 (Version 1)
Quarter: 2018Q4

REPORT INFORMATION
  Report Type: Spontaneous
  Country: US (occurrence: US)
  Receive Date: 20181113
  Receipt Date: 20181113
  Transmission Date: 20190205
  Serious: Yes (Other)
  Sender: FDA-Public Use
  Company Number: US-ADAMAS PHARMA, LLC-2018ADA02776

PATIENT
  Age: 14 Year
  Sex: Male

DRUGS (1)
  1. AMANTADINE. [Suspect]
     Active Substance: AMANTADINE HYDROCHLORIDE
     Indication: CENTRAL NERVOUS SYSTEM STIMULATION
     Dosage: 100 MG, 2X/DAY
     Route: 048
     Dates: start: 201511, end: 201607

REACTIONS (3)
  - Punctate keratitis [Recovering/Resolving]
  - Corneal oedema [Recovered/Resolved]
  - Visual acuity reduced [Recovering/Resolving]

NARRATIVE: CASE EVENT DATE: 201605
